FAERS Safety Report 4581796-5 (Version None)
Quarter: 2005Q1

REPORT INFORMATION
  Report Type: 
  Country: None (occurrence: None)
  Receive Date: 20050214
  Receipt Date: 20040304
  Transmission Date: 20050727
  Serious: No
  Sender: FDA-Public Use
  Company Number: US-GLAXOSMITHKLINE-A0501225A

PATIENT
  Age: 50 Year
  Sex: Male
  Weight: 72.7 kg

DRUGS (4)
  1. LAMICTAL [Suspect]
     Indication: EPILEPSY
     Route: 048
     Dates: start: 20030321, end: 20040318
  2. KLONOPIN [Concomitant]
     Indication: EPILEPSY
     Route: 048
     Dates: start: 19900101
  3. TEGRETOL [Concomitant]
     Indication: EPILEPSY
     Dosage: 200MG FOUR TIMES PER DAY
     Route: 048
     Dates: start: 19900101
  4. ZONEGRAN [Concomitant]
     Indication: EPILEPSY
     Dosage: 100MG VARIABLE DOSE
     Route: 048
     Dates: start: 20010910

REACTIONS (1)
  - RASH [None]
